FAERS Safety Report 18125008 (Version 1)
Quarter: 2020Q3

REPORT INFORMATION
  Report Type: Spontaneous
  Country: PR (occurrence: PR)
  Receive Date: 20200807
  Receipt Date: 20200807
  Transmission Date: 20201103
  Serious: No
  Sender: FDA-Public Use
  Company Number: PR-JNJFOC-20200745256

PATIENT
  Age: 71 Year
  Sex: Female

DRUGS (1)
  1. INVOKAMET [Suspect]
     Active Substance: CANAGLIFLOZIN\METFORMIN HYDROCHLORIDE
     Indication: PRODUCT USED FOR UNKNOWN INDICATION
     Dosage: 50?1000 (MG MILLIGRAM)
     Route: 048

REACTIONS (2)
  - Glycosylated haemoglobin increased [Unknown]
  - Product prescribing error [Unknown]
